FAERS Safety Report 4441952-3 (Version None)
Quarter: 2004Q3

REPORT INFORMATION
  Report Type: 
  Country: None (occurrence: None)
  Receive Date: 20040907
  Receipt Date: 20040827
  Transmission Date: 20050211
  Serious: Yes (Other)
  Sender: FDA-Public Use
  Company Number: US-GLAXOSMITHKLINE-A0523724A

PATIENT

DRUGS (1)
  1. PAXIL [Suspect]
     Indication: ANXIETY DISORDER
     Route: 048
     Dates: end: 20000101

REACTIONS (5)
  - DIABETES MELLITUS [None]
  - HALLUCINATION [None]
  - MOOD SWINGS [None]
  - PALPITATIONS [None]
  - SUICIDAL IDEATION [None]
